FAERS Safety Report 7809952-0 (Version None)
Quarter: 2011Q4

REPORT INFORMATION
  Report Type: 
  Country: None (occurrence: None)
  Receive Date: 20111012
  Receipt Date: 20111006
  Transmission Date: 20120403
  Serious: No
  Sender: FDA-Public Use
  Company Number: US-PFIZER INC-2011239095

PATIENT
  Age: 74 Year
  Sex: Female
  Weight: 83.5 kg

DRUGS (3)
  1. TREPROSTINIL SODIUM [Suspect]
     Indication: COR PULMONALE CHRONIC
     Dosage: 18 TO 54 UG (4 IN 1 D)
  2. TRACLEER [Concomitant]
     Dosage: UNK
  3. REVATIO [Suspect]
     Dosage: UNK

REACTIONS (1)
  - VAGINAL HAEMORRHAGE [None]
